FAERS Safety Report 5578312-8 (Version None)
Quarter: 2007Q4

REPORT INFORMATION
  Report Type: 
  Country: None (occurrence: None)
  Receive Date: 20071130
  Receipt Date: 20070628
  Transmission Date: 20080405
  Serious: No
  Sender: FDA-Public Use
  Company Number: US200707000973

PATIENT
  Sex: Male

DRUGS (1)
  1. BYETTA [Suspect]
     Dosage: 5 UG SUBCUTANEOUS
     Route: 058
     Dates: start: 20060101, end: 20070601

REACTIONS (2)
  - HYPOGLYCAEMIA [None]
  - WEIGHT DECREASED [None]
